FAERS Safety Report 5425093-4 (Version None)
Quarter: 2007Q3

REPORT INFORMATION
  Report Type: 
  Country: None (occurrence: None)
  Receive Date: 20070824
  Receipt Date: 20070815
  Transmission Date: 20080115
  Serious: Yes (Hospitalization, Other)
  Sender: FDA-Public Use
  Company Number: FR-JNJFOC-20070601603

PATIENT
  Age: 83 Year
  Sex: Female

DRUGS (4)
  1. TAVANIC [Suspect]
     Indication: LUNG DISORDER
     Route: 048
     Dates: start: 20070410, end: 20070421
  2. TRAMADOL HCL [Interacting]
     Route: 048
  3. TRAMADOL HCL [Interacting]
     Indication: PLEURITIC PAIN
     Route: 048
  4. CORTANCYL [Concomitant]
     Indication: MIXED CONNECTIVE TISSUE DISEASE
     Route: 048

REACTIONS (4)
  - COORDINATION ABNORMAL [None]
  - DRUG INTERACTION [None]
  - EXTRAPYRAMIDAL DISORDER [None]
  - OVERDOSE [None]
